FAERS Safety Report 5530941-3 (Version None)
Quarter: 2007Q4

REPORT INFORMATION
  Report Type: 
  Country: None (occurrence: None)
  Receive Date: 20071130
  Receipt Date: 20071120
  Transmission Date: 20080405
  Serious: Yes (Other)
  Sender: FDA-Public Use
  Company Number: IS-PFIZER INC-2007076463

PATIENT
  Age: 48 Year
  Sex: Male

DRUGS (2)
  1. CHAMPIX [Suspect]
     Indication: SMOKING CESSATION THERAPY
     Dates: start: 20070822, end: 20070823
  2. IMOVANE [Concomitant]

REACTIONS (2)
  - CUSHINGOID [None]
  - PRURITUS [None]
